FAERS Safety Report 8163892 (Version 3)
Quarter: 2013Q1

REPORT INFORMATION
  Report Type: Spontaneous
  Country: US (occurrence: US)
  Receive Date: 20110930
  Receipt Date: 20130122
  Transmission Date: 20140127
  Serious: Yes (Other)
  Sender: FDA-Public Use
  Company Number: US-ASTRAZENECA-2011SE07787

PATIENT
  Age: 87 Year
  Sex: Female

DRUGS (2)
  1. ARIMIDEX [Suspect]
     Route: 048
  2. FASLODEX [Suspect]
     Route: 030

REACTIONS (3)
  - Malignant neoplasm progression [Unknown]
  - Nasopharyngitis [Recovered/Resolved]
  - Skeletal injury [Unknown]
